FAERS Safety Report 14082060 (Version 1)
Quarter: 2017Q4

REPORT INFORMATION
  Report Type: Spontaneous
  Country: CN (occurrence: CN)
  Receive Date: 20171013
  Receipt Date: 20171013
  Transmission Date: 20180321
  Serious: Yes (Hospitalization)
  Sender: FDA-Public Use
  Company Number: CN-BAYER-2017-197947

PATIENT
  Age: 65 Year
  Sex: Male

DRUGS (2)
  1. SULPERAZONE [Concomitant]
     Active Substance: CEFOPERAZONE SODIUM\SULBACTAM SODIUM
     Dosage: UNK
     Dates: start: 20140328, end: 20140330
  2. AVELOX [Suspect]
     Active Substance: MOXIFLOXACIN HYDROCHLORIDE
     Indication: PNEUMONIA
     Dosage: DAILY DOSE 400 MG
     Route: 042
     Dates: start: 20140328, end: 20140330

REACTIONS (1)
  - Therapeutic product ineffective [None]

NARRATIVE: CASE EVENT DATE: 20140330
